FAERS Safety Report 7179802-7 (Version None)
Quarter: 2010Q4

REPORT INFORMATION
  Report Type: 
  Country: None (occurrence: None)
  Receive Date: 20101221
  Receipt Date: 20101208
  Transmission Date: 20110411
  Serious: Yes (Hospitalization, Other)
  Sender: FDA-Public Use
  Company Number: US-ROCHE-727298

PATIENT
  Sex: Female
  Weight: 63.5 kg

DRUGS (3)
  1. ACCUTANE [Suspect]
     Indication: ACNE
     Route: 065
     Dates: start: 19950101, end: 19970101
  2. YASMIN [Concomitant]
     Dates: start: 19970301
  3. ORTHO CYCLEN-28 [Concomitant]
     Dates: start: 19970401

REACTIONS (11)
  - COLITIS ULCERATIVE [None]
  - COLONIC POLYP [None]
  - DEPRESSION [None]
  - GASTROINTESTINAL INJURY [None]
  - HYPERTENSION [None]
  - INFLAMMATORY BOWEL DISEASE [None]
  - IRON DEFICIENCY ANAEMIA [None]
  - LOWER GASTROINTESTINAL HAEMORRHAGE [None]
  - MENTAL DISORDER [None]
  - OEDEMA [None]
  - OSTEOARTHRITIS [None]
